FAERS Safety Report 7352930-9 (Version None)
Quarter: 2011Q1

REPORT INFORMATION
  Report Type: 
  Country: None (occurrence: None)
  Receive Date: 20110315
  Receipt Date: 20110302
  Transmission Date: 20110831
  Serious: Yes (Other)
  Sender: FDA-Public Use
  Company Number: PHHY2011US17740

PATIENT
  Sex: Female

DRUGS (3)
  1. AMBIEN [Concomitant]
  2. FANAPT [Suspect]
     Dosage: 6 MG, BID
  3. LAMICTAL [Concomitant]

REACTIONS (4)
  - WEIGHT INCREASED [None]
  - DRUG WITHDRAWAL SYNDROME [None]
  - DIZZINESS [None]
  - HYPOAESTHESIA [None]
